FAERS Safety Report 22378983 (Version 1)
Quarter: 2023Q2

REPORT INFORMATION
  Report Type: Other
  Country: CN (occurrence: None)
  Receive Date: 20230529
  Receipt Date: 20230529
  Transmission Date: 20230721
  Serious: Yes (Other)
  Sender: FDA-Public Use
  Company Number: CN-ROCHE-3357902

PATIENT
  Age: 70 Year
  Sex: Female

DRUGS (6)
  1. BEVACIZUMAB [Suspect]
     Active Substance: BEVACIZUMAB
     Indication: Adenocarcinoma metastatic
     Dosage: FIRST-LINE COMBINATION TREATMENT
     Route: 065
     Dates: start: 201909
  2. BEVACIZUMAB [Suspect]
     Active Substance: BEVACIZUMAB
     Dosage: SECOND-LINE TREATMENT
     Route: 065
     Dates: start: 202009
  3. AFATINIB [Suspect]
     Active Substance: AFATINIB
     Indication: Adenocarcinoma metastatic
     Dosage: FIRST-LINE COMBINATION TREATMENT
     Route: 065
     Dates: start: 201909
  4. AUMOLERTINIB [Suspect]
     Active Substance: AUMOLERTINIB
     Indication: Adenocarcinoma metastatic
     Dosage: SECOND-LINE TREATMENT
     Route: 065
     Dates: start: 202009
  5. OSIMERTINIB [Concomitant]
     Active Substance: OSIMERTINIB
     Route: 065
     Dates: end: 202111
  6. OXYCODONE [Concomitant]
     Active Substance: OXYCODONE

REACTIONS (2)
  - Metastases to central nervous system [Unknown]
  - Disease progression [Unknown]
